FAERS Safety Report 24949513 (Version 1)
Quarter: 2025Q1

REPORT INFORMATION
  Report Type: Report from Study
  Country: ZA (occurrence: ZA)
  Receive Date: 20250210
  Receipt Date: 20250210
  Transmission Date: 20250408
  Serious: Yes (Death, Other)
  Sender: AMGEN
  Company Number: ZA-AMGEN-ZAFSL2025023862

PATIENT
  Age: 52 Year
  Sex: Female

DRUGS (2)
  1. ARANESP [Suspect]
     Active Substance: DARBEPOETIN ALFA
     Indication: Product used for unknown indication
     Dosage: 80 MICROGRAM, QWK
     Route: 058
     Dates: start: 202301, end: 20250204
  2. IRON SUCROSE [Concomitant]
     Active Substance: IRON SUCROSE

REACTIONS (2)
  - Headache [Fatal]
  - Haemodialysis [Unknown]
